FAERS Safety Report 23663717 (Version 1)
Quarter: 2024Q1

REPORT INFORMATION
  Report Type: Spontaneous
  Country: FR (occurrence: FR)
  Receive Date: 20240322
  Receipt Date: 20240322
  Transmission Date: 20240410
  Serious: Yes (Death)
  Sender: FDA-Public Use
  Company Number: None

PATIENT
  Age: 75 Year
  Sex: Female
  Weight: 66 kg

DRUGS (14)
  1. PEGFILGRASTIM [Suspect]
     Active Substance: PEGFILGRASTIM
     Indication: Neutropenia
     Dosage: 6 MG, 1X/DAY
     Route: 058
     Dates: start: 20240208, end: 20240208
  2. ENHERTU [Suspect]
     Active Substance: FAM-TRASTUZUMAB DERUXTECAN-NXKI
     Indication: Invasive ductal breast carcinoma
     Dosage: 300 MG, 1X/DAY (5.4MG/M?)
     Route: 042
     Dates: start: 20240206, end: 20240206
  3. ONDANSETRON [Suspect]
     Active Substance: ONDANSETRON
     Indication: Prophylaxis of nausea and vomiting
     Dosage: 8 MG, FREQ:2 H
     Route: 048
     Dates: start: 20240206, end: 20240206
  4. METOCLOPRAMIDE [Suspect]
     Active Substance: METOCLOPRAMIDE
     Indication: Prophylaxis of nausea and vomiting
     Dosage: 10 MG, FREQ:8 H
     Route: 048
     Dates: start: 20240206, end: 20240206
  5. PREDNISONE [Suspect]
     Active Substance: PREDNISONE
     Indication: Prophylaxis of nausea and vomiting
     Dosage: 80 MG, 1X/DAY
     Route: 048
     Dates: start: 20240206, end: 20240206
  6. PREDNISONE [Suspect]
     Active Substance: PREDNISONE
     Dosage: 60 MG, 1X/DAY
     Route: 048
     Dates: start: 20240207, end: 20240209
  7. APREPITANT [Suspect]
     Active Substance: APREPITANT
     Indication: Prophylaxis of nausea and vomiting
     Dosage: 125 MG, 1X/DAY
     Route: 048
     Dates: start: 20240206, end: 20240206
  8. APREPITANT [Suspect]
     Active Substance: APREPITANT
     Dosage: 80 MG, 1X/DAY
     Route: 048
     Dates: start: 20240207, end: 20240208
  9. LEVOTHYROXINE [Concomitant]
     Active Substance: LEVOTHYROXINE\LEVOTHYROXINE SODIUM
  10. ACETAMINOPHEN [Concomitant]
     Active Substance: ACETAMINOPHEN
  11. OXYCODONE [Concomitant]
     Active Substance: OXYCODONE\OXYCODONE HYDROCHLORIDE
  12. ENOXAPARIN [Concomitant]
     Active Substance: ENOXAPARIN
  13. FOLIC ACID [Concomitant]
     Active Substance: FOLIC ACID
  14. IRON [Concomitant]
     Active Substance: IRON

REACTIONS (5)
  - Abdominal rigidity [Fatal]
  - Nausea [Fatal]
  - Vomiting [Fatal]
  - Neoplasm progression [Fatal]
  - Iatrogenic infection [Fatal]

NARRATIVE: CASE EVENT DATE: 20240209
